FAERS Safety Report 6921566-3 (Version None)
Quarter: 2010Q3

REPORT INFORMATION
  Report Type: 
  Country: None (occurrence: None)
  Receive Date: 20100812
  Receipt Date: 20100730
  Transmission Date: 20110219
  Serious: Yes (Hospitalization, Other)
  Sender: FDA-Public Use
  Company Number: US-ELI_LILLY_AND_COMPANY-US201008000814

PATIENT
  Sex: Male

DRUGS (12)
  1. FORTEO [Suspect]
     Dosage: 20 UG, DAILY (1/D)
     Dates: end: 20100630
  2. COUMADIN [Concomitant]
  3. ASPIRIN [Concomitant]
  4. SYNTHROID [Concomitant]
  5. TEGRETOL [Concomitant]
  6. BALSALAZIDE [Concomitant]
  7. SIMVASTIN [Concomitant]
  8. PRILOSEC [Concomitant]
  9. LYRICA [Concomitant]
  10. HYDROCODONE BITARTRATE [Concomitant]
  11. AMBIEN [Concomitant]
  12. BENICAR [Concomitant]

REACTIONS (9)
  - COUGH [None]
  - DEHYDRATION [None]
  - DIARRHOEA [None]
  - HAEMORRHAGE [None]
  - HOSPITALISATION [None]
  - MUSCULAR WEAKNESS [None]
  - MYALGIA [None]
  - SWOLLEN TONGUE [None]
  - VOMITING [None]
